FAERS Safety Report 16849710 (Version 1)
Quarter: 2019Q3

REPORT INFORMATION
  Report Type: Spontaneous
  Country: US (occurrence: US)
  Receive Date: 20190802
  Receipt Date: 20190802
  Transmission Date: 20191005
  Serious: Yes (Life-Threatening, Other)
  Sender: FDA-Public Use
  Company Number: None

PATIENT
  Age: 63 Year
  Sex: Female
  Weight: 76.2 kg

DRUGS (3)
  1. FLUOXETINE 40MG CAPSULES [Suspect]
     Active Substance: FLUOXETINE HYDROCHLORIDE
     Indication: ANXIETY
     Dosage: ?          QUANTITY:2 MG MILLIGRAM(S);?
     Route: 048
     Dates: start: 20190222, end: 20190519
  2. FLUOXETINE 40MG CAPSULES [Suspect]
     Active Substance: FLUOXETINE HYDROCHLORIDE
     Indication: POST-TRAUMATIC STRESS DISORDER
     Dosage: ?          QUANTITY:2 MG MILLIGRAM(S);?
     Route: 048
     Dates: start: 20190222, end: 20190519
  3. FLUOXETINE 40MG CAPSULES [Suspect]
     Active Substance: FLUOXETINE HYDROCHLORIDE
     Indication: DEPRESSION
     Dosage: ?          QUANTITY:2 MG MILLIGRAM(S);?
     Route: 048
     Dates: start: 20190222, end: 20190519

REACTIONS (11)
  - Depression [None]
  - Insomnia [None]
  - Product substitution issue [None]
  - Nightmare [None]
  - Product dispensing error [None]
  - Aggression [None]
  - Anxiety [None]
  - Disturbance in attention [None]
  - Drug ineffective [None]
  - Confusional state [None]
  - Anger [None]

NARRATIVE: CASE EVENT DATE: 20190522
